FAERS Safety Report 7821050-9 (Version None)
Quarter: 2011Q4

REPORT INFORMATION
  Report Type: 
  Country: None (occurrence: None)
  Receive Date: 20111018
  Receipt Date: 20111014
  Transmission Date: 20120403
  Serious: No
  Sender: FDA-Public Use
  Company Number: US-PFIZER INC-2011246571

PATIENT
  Sex: Male

DRUGS (2)
  1. C1-INAKTIVATOR [Interacting]
     Indication: HEREDITARY ANGIOEDEMA
     Dosage: 1000 IU EVERY 3 TO 4 DAYS
     Route: 042
     Dates: start: 20100101
  2. ZITHROMAX [Suspect]
     Indication: SINUSITIS
     Dosage: UNK
     Dates: start: 20110816, end: 20110820

REACTIONS (2)
  - DRUG INTERACTION [None]
  - DRUG EFFECT DECREASED [None]
